FAERS Safety Report 8020050-6 (Version None)
Quarter: 2012Q1

REPORT INFORMATION
  Report Type: 
  Country: None (occurrence: None)
  Receive Date: 20120103
  Receipt Date: 20111222
  Transmission Date: 20120608
  Serious: Yes (Disabling)
  Sender: FDA-Public Use
  Company Number: GB-GILEAD-2012-0048687

PATIENT
  Sex: Female

DRUGS (4)
  1. AMBRISENTAN [Suspect]
     Indication: PULMONARY HYPERTENSION
     Route: 065
     Dates: start: 20100101
  2. WARFARIN SODIUM [Concomitant]
  3. DIURAL                             /00032601/ [Concomitant]
  4. SPIRONOLACTONE [Concomitant]

REACTIONS (3)
  - VOMITING [None]
  - DEAFNESS UNILATERAL [None]
  - NAUSEA [None]
